FAERS Safety Report 7326809-2 (Version None)
Quarter: 2011Q1

REPORT INFORMATION
  Report Type: 
  Country: None (occurrence: None)
  Receive Date: 20110223
  Receipt Date: 20110204
  Transmission Date: 20110831
  Serious: Yes (Hospitalization)
  Sender: FDA-Public Use
  Company Number: JPI-I-013147

PATIENT
  Age: 49 Year
  Sex: Female
  Weight: 68.9467 kg

DRUGS (10)
  1. XYREM [Suspect]
     Indication: NARCOLEPSY
     Dosage: 4.5 GM (2.25 GM,2 IN 1 D), ORAL; (TITRATING DOSE), ORAL; 8 GM (4 GM,2 IN 1 D), ORAL
     Route: 048
     Dates: start: 20100901, end: 20100101
  2. XYREM [Suspect]
     Indication: NARCOLEPSY
     Dosage: 4.5 GM (2.25 GM,2 IN 1 D), ORAL; (TITRATING DOSE), ORAL; 8 GM (4 GM,2 IN 1 D), ORAL
     Route: 048
     Dates: start: 20101104, end: 20101201
  3. XYREM [Suspect]
     Indication: NARCOLEPSY
     Dosage: 4.5 GM (2.25 GM,2 IN 1 D), ORAL; (TITRATING DOSE), ORAL; 8 GM (4 GM,2 IN 1 D), ORAL
     Route: 048
     Dates: start: 20100101, end: 20100101
  4. PROPOXYPHENE HCL AND ACETAMINOPHEN [Concomitant]
  5. PENTOSAN POLYSULFATE SODIUM [Concomitant]
  6. ARMODAFINIL [Concomitant]
  7. SERTALINE HYDROCHLORIDE [Concomitant]
  8. CONJUGATED ESTROGENS [Concomitant]
  9. FEXOFENADINE [Concomitant]
  10. AMLODIPINE BESTYLATE AND BENAZEPRIL HCL [Concomitant]

REACTIONS (7)
  - DIZZINESS [None]
  - MOVEMENT DISORDER [None]
  - VIRAL INFECTION [None]
  - COMMUNICATION DISORDER [None]
  - HEADACHE [None]
  - WEIGHT DECREASED [None]
  - COELIAC DISEASE [None]
